FAERS Safety Report 4611840-8 (Version None)
Quarter: 2005Q1

REPORT INFORMATION
  Report Type: 
  Country: None (occurrence: None)
  Receive Date: 20050308
  Receipt Date: 20050110
  Transmission Date: 20050727
  Serious: Yes (Other)
  Sender: FDA-Public Use
  Company Number: 2005UW00433

PATIENT
  Age: 82 Year
  Sex: Female
  Weight: 72.574 kg

DRUGS (5)
  1. CRESTOR [Suspect]
     Indication: BLOOD CHOLESTEROL INCREASED
     Dosage: 10 MG PO
     Route: 048
     Dates: start: 20040501
  2. BENICAR [Concomitant]
  3. TENORMIN [Concomitant]
  4. DETROL [Concomitant]
  5. ECOTRIN [Concomitant]

REACTIONS (4)
  - BLOOD CALCIUM INCREASED [None]
  - CRYING [None]
  - DEPRESSION [None]
  - PARATHYROID DISORDER [None]
